FAERS Safety Report 9381369 (Version 1)
Quarter: 2013Q3

REPORT INFORMATION
  Report Type: Spontaneous
  Country: TR (occurrence: TR)
  Receive Date: 20130703
  Receipt Date: 20130703
  Transmission Date: 20140515
  Serious: Yes (Other)
  Sender: FDA-Public Use
  Company Number: TR-ROXANE LABORATORIES, INC.-2013-RO-01087RO

PATIENT
  Age: 44 Year
  Sex: Female

DRUGS (2)
  1. LEVETIRACETAM [Suspect]
     Indication: EPILEPSY
     Dosage: 2000 MG
  2. CARBAMAZEPINE [Suspect]
     Indication: EPILEPSY
     Dosage: 800 MG

REACTIONS (1)
  - Hypersexuality [Recovered/Resolved]
